FAERS Safety Report 13234696 (Version 1)
Quarter: 2017Q1

REPORT INFORMATION
  Report Type: Spontaneous
  Country: US (occurrence: US)
  Receive Date: 20170215
  Receipt Date: 20170215
  Transmission Date: 20170428
  Serious: No
  Sender: FDA-Public Use
  Company Number: US-BIOGEN-2017BI00357155

PATIENT
  Age: 56 Year
  Sex: Male

DRUGS (1)
  1. TYSABRI [Suspect]
     Active Substance: NATALIZUMAB
     Indication: MULTIPLE SCLEROSIS
     Dosage: INFUSED OVER 1 HOUR
     Route: 042
     Dates: start: 20111207, end: 20120208

REACTIONS (4)
  - Haemorrhoids [Recovered/Resolved]
  - Central nervous system lesion [Recovered/Resolved]
  - Gastrooesophageal reflux disease [Recovered/Resolved]
  - Retinitis [Recovered/Resolved]

NARRATIVE: CASE EVENT DATE: 20120208
